FAERS Safety Report 25644159 (Version 1)
Quarter: 2025Q3

REPORT INFORMATION
  Report Type: Spontaneous
  Country: GB (occurrence: GB)
  Receive Date: 20250805
  Receipt Date: 20250805
  Transmission Date: 20251020
  Serious: Yes (Life-Threatening, Other)
  Sender: MYLAN
  Company Number: GB-MHRA-36329460

PATIENT
  Age: 26 Year
  Sex: Male
  Weight: 63 kg

DRUGS (3)
  1. RIFAMPIN [Suspect]
     Active Substance: RIFAMPIN
     Indication: Latent tuberculosis
     Dosage: 300 MILLIGRAM, QD
     Dates: start: 20250520, end: 20250602
  2. ISONIAZID [Concomitant]
     Active Substance: ISONIAZID
     Indication: Latent tuberculosis
     Dosage: 300 MILLIGRAM, QD (ISONIAZID 100MG TABLETS, 3 TO BE TAKEN ONCE A DAY)
     Dates: start: 20250520
  3. PYRIDOXINE [Concomitant]
     Active Substance: PYRIDOXINE
     Dosage: 25 MILLIGRAM, QD (PYRIDOXINE 50 MG TABLETS, HALF A TABLET DAILY)
     Dates: start: 20250520

REACTIONS (6)
  - Acute kidney injury [Recovering/Resolving]
  - Gastroenteritis [Unknown]
  - Pyrexia [Unknown]
  - Vomiting [Unknown]
  - Headache [Unknown]
  - Nausea [Unknown]

NARRATIVE: CASE EVENT DATE: 20250101
